FAERS Safety Report 10582602 (Version 4)
Quarter: 2014Q4

REPORT INFORMATION
  Report Type: Spontaneous
  Country: JP (occurrence: JP)
  Receive Date: 20141113
  Receipt Date: 20141224
  Transmission Date: 20150529
  Serious: Yes (Other)
  Sender: FDA-Public Use
  Company Number: JP-ASTRAZENECA-2014SE82858

PATIENT
  Age: 54 Year
  Sex: Female

DRUGS (10)
  1. SYMBICORT [Suspect]
     Active Substance: BUDESONIDE\FORMOTEROL FUMARATE DIHYDRATE
     Indication: ASTHMA
     Dosage: 2 DF, DAILY
     Route: 055
     Dates: start: 20141023, end: 20141024
  2. TAKEPRON [Concomitant]
     Active Substance: LANSOPRAZOLE
     Route: 048
  3. FLOMOX [Concomitant]
     Active Substance: CEFCAPENE PIVOXIL HYDROCHLORIDE HYDRATE
     Route: 048
  4. ONON [Concomitant]
     Active Substance: PRANLUKAST
     Route: 048
  5. SELBEX [Concomitant]
     Active Substance: TEPRENONE
     Route: 048
  6. SELBEX [Concomitant]
     Active Substance: TEPRENONE
     Route: 048
  7. MUCODYNE [Concomitant]
     Active Substance: CARBOCYSTEINE
     Route: 048
  8. MUCODYNE [Concomitant]
     Active Substance: CARBOCYSTEINE
     Route: 048
     Dates: start: 20141023
  9. KLARICID [Concomitant]
     Active Substance: CLARITHROMYCIN
     Route: 048
  10. ONON [Concomitant]
     Active Substance: PRANLUKAST
     Route: 048

REACTIONS (8)
  - Tracheal oedema [Unknown]
  - Lip oedema [Recovering/Resolving]
  - Rash vesicular [Unknown]
  - Pharyngeal oedema [Recovering/Resolving]
  - Oedema [Unknown]
  - Laryngeal discomfort [Recovering/Resolving]
  - Pharyngeal erythema [Unknown]
  - Asthma [Unknown]

NARRATIVE: CASE EVENT DATE: 20141023
